FAERS Safety Report 4983524-8 (Version None)
Quarter: 2006Q2

REPORT INFORMATION
  Report Type: 
  Country: None (occurrence: None)
  Receive Date: 20060419
  Receipt Date: 20060410
  Transmission Date: 20061013
  Serious: Yes (Hospitalization)
  Sender: FDA-Public Use
  Company Number: 2006049808

PATIENT
  Age: 79 Year
  Sex: Female
  Weight: 77 kg

DRUGS (2)
  1. ALDACTONE [Suspect]
     Indication: CARDIAC FAILURE
     Dosage: 25 MG (25 MG, DAILY), ORAL
     Route: 048
     Dates: end: 20051108
  2. RAMIPRIL [Suspect]
     Indication: CARDIAC FAILURE
     Dosage: 5 MG (5 MG, QD), ORAL
     Route: 048

REACTIONS (2)
  - BLOOD CREATINE INCREASED [None]
  - HYPERKALAEMIA [None]
